FAERS Safety Report 4300690-8 (Version None)
Quarter: 2004Q1

REPORT INFORMATION
  Report Type: 
  Country: None (occurrence: None)
  Receive Date: 20040218
  Receipt Date: 20040129
  Transmission Date: 20041129
  Serious: Yes (Death, Other)
  Sender: FDA-Public Use
  Company Number: JP_030901693

PATIENT
  Age: 69 Year
  Sex: Male
  Weight: 59 kg

DRUGS (19)
  1. GEMZAR [Suspect]
     Indication: PANCREATIC CARCINOMA
     Dosage: 1000 MG/M2/OTHER
     Dates: start: 20030528, end: 20030611
  2. LOXONIN (LOXOPROFEN SODIUM) [Concomitant]
  3. SELBEX (TEPRENONE) [Concomitant]
  4. HYPEN (ETODOLAC) [Concomitant]
  5. FAMOTIDINE [Concomitant]
  6. MAGNESIUM OXIDE [Concomitant]
  7. MUCOSOLVAN (AMBROXOL HYDROCHLORIDE) [Concomitant]
  8. SINGULAIR [Concomitant]
  9. CLARITHROMYCIN [Concomitant]
  10. LAXOBERON (SODIUM PICOSULFATE) [Concomitant]
  11. CAPISTEN (KETOPROFEN) [Concomitant]
  12. KYTRIL [Concomitant]
  13. ISODINE GARGLE (IODINE) [Concomitant]
  14. FENTANYL [Concomitant]
  15. SERENACE (HALOPERIDOL) [Concomitant]
  16. PREDNISOLONE [Concomitant]
  17. CEREKINON (TRIMEBUTINE MALEATE) [Concomitant]
  18. OMEPRAZOLE [Concomitant]
  19. NOVAMIN (PROCHLORPERAZINE) [Concomitant]

REACTIONS (9)
  - ANAEMIA [None]
  - HEPATORENAL SYNDROME [None]
  - MALIGNANT NEOPLASM PROGRESSION [None]
  - METASTASES TO LIVER [None]
  - NAUSEA [None]
  - PANCREATIC CARCINOMA METASTATIC [None]
  - PLATELET COUNT DECREASED [None]
  - THROMBOCYTOPENIA [None]
  - VOMITING [None]
